FAERS Safety Report 4932965-3 (Version None)
Quarter: 2006Q1

REPORT INFORMATION
  Report Type: 
  Country: None (occurrence: None)
  Receive Date: 20060306
  Receipt Date: 20060227
  Transmission Date: 20060701
  Serious: Yes (Other)
  Sender: FDA-Public Use
  Company Number: MZ-AVENTIS-200611851GDDC

PATIENT

DRUGS (3)
  1. ARAVA [Suspect]
     Dosage: DOSE: UNK
  2. NAPROXEN [Suspect]
     Dosage: DOSE: UNK
  3. ACE INHIBITOR NOS [Suspect]
     Dosage: DOSE: UNK

REACTIONS (6)
  - ANAEMIA [None]
  - CARDIAC FAILURE [None]
  - DYSPNOEA [None]
  - HYPERTENSION [None]
  - LUNG INFILTRATION [None]
  - RENAL IMPAIRMENT [None]
